FAERS Safety Report 8803717 (Version 1)
Quarter: 2012Q4

REPORT INFORMATION
  Report Type: Report from Study
  Country: CA (occurrence: CA)
  Receive Date: 20120924
  Receipt Date: 20120924
  Transmission Date: 20130627
  Serious: Yes (Other)
  Sender: FDA-Public Use
  Company Number: CA-JNJFOC-20120906411

PATIENT
  Age: 51 Year
  Sex: Female
  Weight: 75 kg

DRUGS (6)
  1. REMICADE [Suspect]
     Indication: RHEUMATOID ARTHRITIS
     Dosage: 2nd infusion
     Route: 042
     Dates: start: 20120726, end: 20120726
  2. REMICADE [Suspect]
     Indication: RHEUMATOID ARTHRITIS
     Route: 042
     Dates: start: 20120712
  3. SULFASALAZINE [Concomitant]
     Route: 065
  4. METHOTREXATE [Concomitant]
     Route: 065
  5. LEFLUNOMIDE [Concomitant]
     Route: 065
  6. HUMIRA [Concomitant]
     Route: 065

REACTIONS (6)
  - Infusion related reaction [Unknown]
  - Dyspnoea [Recovered/Resolved]
  - Convulsion [Recovered/Resolved]
  - Cardio-respiratory arrest [Recovered/Resolved]
  - Adverse event [Unknown]
  - Fatigue [Recovered/Resolved]
